FAERS Safety Report 8852673 (Version 1)
Quarter: 2012Q4

REPORT INFORMATION
  Report Type: 
  Country: US (occurrence: US)
  Receive Date: 20121022
  Receipt Date: 20121022
  Transmission Date: 20130627
  Serious: Yes (Other)
  Sender: FDA-Public Use
  Company Number: US-ASTRAZENECA-2012SE78319

PATIENT
  Age: 72 Year
  Sex: Male
  Weight: 98.9 kg

DRUGS (8)
  1. CASODEX [Suspect]
     Route: 048
  2. FIRMAGON [Suspect]
     Indication: PROSTATE CANCER METASTATIC
     Route: 058
     Dates: start: 20110117
  3. FIRMAGON [Suspect]
     Indication: PROSTATE CANCER METASTATIC
     Route: 058
     Dates: start: 20120524
  4. FIRMAGON [Suspect]
     Indication: PROSTATE CANCER METASTATIC
     Route: 058
     Dates: start: 20120913
  5. ASPIRIN [Concomitant]
  6. CALCIUM [Concomitant]
  7. BLACKMORES MULTIVITAMIN AND MINERAL [Concomitant]
  8. DENOSUMAB [Concomitant]

REACTIONS (2)
  - Convulsion [Recovered/Resolved]
  - Intentional drug misuse [Unknown]
